FAERS Safety Report 4789821-3 (Version None)
Quarter: 2005Q4

REPORT INFORMATION
  Report Type: 
  Country: None (occurrence: None)
  Receive Date: 20051006
  Receipt Date: 20051003
  Transmission Date: 20060501
  Serious: Yes (Death, Other)
  Sender: FDA-Public Use
  Company Number: GB-GLAXOSMITHKLINE-B0396072A

PATIENT
  Age: 33 Year
  Sex: Male

DRUGS (2)
  1. ZYBAN [Suspect]
     Route: 048
  2. IBUPROFEN [Concomitant]

REACTIONS (3)
  - ABNORMAL DREAMS [None]
  - INSOMNIA [None]
  - MYOCARDIAL INFARCTION [None]
